FAERS Safety Report 25388057 (Version 3)
Quarter: 2025Q3

REPORT INFORMATION
  Report Type: Spontaneous
  Country: US (occurrence: US)
  Receive Date: 20250603
  Receipt Date: 20250830
  Transmission Date: 20251020
  Serious: No
  Sender: LUPIN
  Company Number: US-LUPIN PHARMACEUTICALS INC.-2025-04459

PATIENT
  Age: 53 Year
  Weight: 56.69 kg

DRUGS (3)
  1. ALBUTEROL SULFATE [Suspect]
     Active Substance: ALBUTEROL SULFATE
     Indication: Asthma
  2. ZYRTEC [Concomitant]
     Active Substance: CETIRIZINE HYDROCHLORIDE
     Indication: Product used for unknown indication
     Route: 065
  3. NASACORT [Concomitant]
     Active Substance: TRIAMCINOLONE ACETONIDE
     Indication: Product used for unknown indication
     Route: 065

REACTIONS (3)
  - Chest discomfort [Unknown]
  - Wrong technique in product usage process [Unknown]
  - Drug dose omission by device [Unknown]
